FAERS Safety Report 8335239-6 (Version None)
Quarter: 2012Q2

REPORT INFORMATION
  Report Type: 
  Country: None (occurrence: None)
  Receive Date: 20120503
  Receipt Date: 20120424
  Transmission Date: 20120825
  Serious: Yes (Hospitalization)
  Sender: FDA-Public Use
  Company Number: US-ABBOTT-11P-163-0879541-00

PATIENT
  Sex: Female
  Weight: 100.79 kg

DRUGS (3)
  1. METFORMIN HCL [Concomitant]
     Indication: PRODUCT USED FOR UNKNOWN INDICATION
     Route: 048
     Dates: start: 20101201
  2. LUPRON DEPOT [Suspect]
     Indication: ENDOMETRIOSIS
     Dates: start: 20110901, end: 20111216
  3. BENICAR [Concomitant]
     Indication: HYPERTENSION
     Route: 048
     Dates: start: 20101201

REACTIONS (7)
  - DIVERTICULUM INTESTINAL [None]
  - ABDOMINAL PAIN [None]
  - NAUSEA [None]
  - SMALL INTESTINAL OBSTRUCTION [None]
  - LUNG NEOPLASM [None]
  - ADNEXA UTERI CYST [None]
  - VOMITING [None]
